FAERS Safety Report 12858500 (Version 1)
Quarter: 2016Q4

REPORT INFORMATION
  Report Type: Spontaneous
  Country: JP (occurrence: JP)
  Receive Date: 20161018
  Receipt Date: 20161018
  Transmission Date: 20170207
  Serious: Yes (Life-Threatening, Hospitalization)
  Sender: FDA-Public Use
  Company Number: JP-CONCORDIA PHARMACEUTICALS INC.-E2B_00007872

PATIENT
  Age: 52 Year
  Sex: Male

DRUGS (11)
  1. DEPAKENE [Suspect]
     Active Substance: VALPROIC ACID
     Dosage: 1200 MG
     Route: 048
     Dates: start: 20150903, end: 201604
  2. DEPAKENE [Suspect]
     Active Substance: VALPROIC ACID
     Dosage: 800 MG
     Route: 048
     Dates: start: 201604, end: 20160707
  3. E KEPPRA [Concomitant]
     Active Substance: LEVETIRACETAM
     Route: 048
     Dates: start: 20160804, end: 20160806
  4. ZONEGRAN [Suspect]
     Active Substance: ZONISAMIDE
     Route: 048
     Dates: start: 20160720, end: 20160803
  5. DEPAKENE [Suspect]
     Active Substance: VALPROIC ACID
     Dosage: UNKNOWN
     Route: 048
     Dates: start: 20140704, end: 20150902
  6. E KEPPRA [Concomitant]
     Active Substance: LEVETIRACETAM
     Indication: EPILEPSY
     Route: 048
     Dates: start: 20160720, end: 20160803
  7. ZONEGRAN [Suspect]
     Active Substance: ZONISAMIDE
     Indication: EPILEPSY
     Route: 048
     Dates: start: 201601, end: 201604
  8. ZONEGRAN [Suspect]
     Active Substance: ZONISAMIDE
     Route: 048
     Dates: start: 201604, end: 20160719
  9. DEPAKENE [Suspect]
     Active Substance: VALPROIC ACID
     Indication: EPILEPSY
     Dosage: UNKNOWN
     Route: 048
     Dates: start: 2013, end: 20140703
  10. DEPAKENE [Suspect]
     Active Substance: VALPROIC ACID
     Dosage: 400 MG
     Route: 048
     Dates: start: 20160708, end: 20160720
  11. E KEPPRA [Concomitant]
     Active Substance: LEVETIRACETAM
     Route: 048
     Dates: start: 20160807

REACTIONS (6)
  - Personality change [Recovered/Resolved]
  - Depersonalisation/derealisation disorder [Recovered/Resolved]
  - Depressive symptom [Recovered/Resolved]
  - Suicidal ideation [Recovered/Resolved]
  - Hallucination [Recovered/Resolved]
  - Delusion [Recovered/Resolved]

NARRATIVE: CASE EVENT DATE: 201601
